FAERS Safety Report 19189026 (Version 1)
Quarter: 2021Q2

REPORT INFORMATION
  Report Type: Spontaneous
  Country: US (occurrence: US)
  Receive Date: 20210428
  Receipt Date: 20210428
  Transmission Date: 20210717
  Serious: Yes (Hospitalization)
  Sender: FDA-Public Use
  Company Number: NVSC2021US087830

PATIENT
  Age: 62 Year
  Sex: Female
  Weight: 89.36 kg

DRUGS (7)
  1. HYDROCORTISONE. [Concomitant]
     Active Substance: HYDROCORTISONE
     Dosage: 5 PILLS
     Route: 065
  2. HYDROCORTISONE. [Concomitant]
     Active Substance: HYDROCORTISONE
     Dosage: 30MG/20MG/10MG
     Route: 065
  3. POTASSIUM [Concomitant]
     Active Substance: POTASSIUM
     Indication: PRODUCT USED FOR UNKNOWN INDICATION
     Dosage: 10 MG
     Route: 042
  4. METOLAZONE. [Suspect]
     Active Substance: METOLAZONE
     Indication: PRODUCT USED FOR UNKNOWN INDICATION
     Dosage: 5MG NDC/LOT
     Route: 065
  5. SOLU?CORTEF [Concomitant]
     Active Substance: HYDROCORTISONE SODIUM SUCCINATE
     Indication: PRODUCT USED FOR UNKNOWN INDICATION
     Route: 065
  6. HYDROCORTISONE. [Concomitant]
     Active Substance: HYDROCORTISONE
     Dosage: 3 (PILLS) DF, QD
     Route: 065
  7. HYDROCORTISONE. [Concomitant]
     Active Substance: HYDROCORTISONE
     Indication: ADDISON^S DISEASE
     Dosage: 15MG IN THE MORNING, 10MG AT LUNCH, 5 MG IN THE
     Route: 065

REACTIONS (14)
  - Herpes zoster [Recovering/Resolving]
  - Pain in extremity [Recovered/Resolved]
  - Blood potassium decreased [Unknown]
  - Pain [Unknown]
  - Anaemia [Unknown]
  - Oxygen saturation decreased [Unknown]
  - Localised infection [Unknown]
  - Incorrect dose administered [Unknown]
  - Fluid retention [Unknown]
  - Burning sensation [Unknown]
  - Weight increased [Unknown]
  - Carbon dioxide increased [Unknown]
  - Swelling [Unknown]
  - Rash macular [Unknown]

NARRATIVE: CASE EVENT DATE: 20210309
